FAERS Safety Report 5716187-4 (Version None)
Quarter: 2008Q2

REPORT INFORMATION
  Report Type: 
  Country: None (occurrence: None)
  Receive Date: 20080424
  Receipt Date: 20080415
  Transmission Date: 20081010
  Serious: Yes (Hospitalization)
  Sender: FDA-Public Use
  Company Number: US-JNJFOC-20080404715

PATIENT
  Sex: Male
  Weight: 124.74 kg

DRUGS (1)
  1. FENTANYL TRANSDERMAL SYSTEM [Suspect]
     Indication: NEURALGIA
     Route: 062

REACTIONS (4)
  - INFECTED SKIN ULCER [None]
  - OSTEOMYELITIS [None]
  - SKIN ULCER [None]
  - WRONG TECHNIQUE IN DRUG USAGE PROCESS [None]
